FAERS Safety Report 6729843-6 (Version None)
Quarter: 2010Q2

REPORT INFORMATION
  Report Type: 
  Country: None (occurrence: None)
  Receive Date: 20100513
  Receipt Date: 20100426
  Transmission Date: 20101027
  Serious: Yes (Hospitalization, Other)
  Sender: FDA-Public Use
  Company Number: 1-22391374

PATIENT
  Age: 26 Year
  Sex: Female

DRUGS (2)
  1. WARFARIN SODIUM [Suspect]
     Indication: MESENTERIC VEIN THROMBOSIS
     Dosage: ORAL
     Route: 048
  2. WARFARIN SODIUM [Suspect]
     Indication: PROPHYLAXIS
     Dosage: ORAL
     Route: 048

REACTIONS (11)
  - ABDOMINAL PAIN UPPER [None]
  - ABDOMINAL TENDERNESS [None]
  - C-REACTIVE PROTEIN INCREASED [None]
  - DRUG EXPOSURE DURING PREGNANCY [None]
  - HAEMORRHAGE [None]
  - ILEUS [None]
  - INTERNATIONAL NORMALISED RATIO INCREASED [None]
  - INTESTINAL INFARCTION [None]
  - NECROSIS ISCHAEMIC [None]
  - VOMITING [None]
  - WHITE BLOOD CELL COUNT INCREASED [None]
